FAERS Safety Report 7409723-3 (Version None)
Quarter: 2011Q2

REPORT INFORMATION
  Report Type: 
  Country: None (occurrence: None)
  Receive Date: 20110412
  Receipt Date: 20110406
  Transmission Date: 20111010
  Serious: Yes (Death)
  Sender: FDA-Public Use
  Company Number: DE-ABBOTT-11P-062-0714507-00

PATIENT
  Age: 87 Year
  Sex: Male
  Weight: 73 kg

DRUGS (2)
  1. SIXANTONE [Suspect]
     Indication: PROSTATE CANCER
     Route: 058
     Dates: start: 20101213, end: 20101213
  2. BICALUTAMIDE [Concomitant]
     Indication: PROSTATE CANCER
     Route: 048

REACTIONS (1)
  - DUODENAL ULCER HAEMORRHAGE [None]
